FAERS Safety Report 8093590-1 (Version None)
Quarter: 2012Q1

REPORT INFORMATION
  Report Type: 
  Country: None (occurrence: None)
  Receive Date: 20120129
  Receipt Date: 20110921
  Transmission Date: 20120608
  Serious: No
  Sender: FDA-Public Use
  Company Number: US-ABBOTT-11P-163-0856851-00

PATIENT
  Sex: Female
  Weight: 96.248 kg

DRUGS (7)
  1. CITALOPRAM [Concomitant]
     Indication: DEPRESSION
  2. DIOVAN [Concomitant]
     Indication: HYPERTENSION
  3. PLAQUENIL [Concomitant]
     Indication: RHEUMATOID ARTHRITIS
  4. HUMIRA [Suspect]
     Indication: RHEUMATOID ARTHRITIS
     Dates: start: 20110701
  5. ROPINIROLE [Concomitant]
     Indication: RESTLESS LEGS SYNDROME
  6. SYNTHROID [Concomitant]
     Indication: HYPOTHYROIDISM
  7. EFFEXOR XR [Concomitant]
     Indication: DEPRESSION

REACTIONS (1)
  - ARTHRALGIA [None]
